FAERS Safety Report 23101909 (Version 1)
Quarter: 2023Q4

REPORT INFORMATION
  Report Type: Spontaneous
  Country: US (occurrence: US)
  Receive Date: 20231025
  Receipt Date: 20231025
  Transmission Date: 20240109
  Serious: Yes (Other)
  Sender: FDA-Public Use
  Company Number: US-CIPLA LTD.-2023US06487

PATIENT

DRUGS (1)
  1. CYCLOPHOSPHAMIDE [Suspect]
     Active Substance: CYCLOPHOSPHAMIDE
     Indication: Rhabdomyosarcoma
     Dosage: UNK
     Route: 065

REACTIONS (8)
  - Pneumothorax [Unknown]
  - Pleuroparenchymal fibroelastosis [Unknown]
  - Pleural thickening [Unknown]
  - Lung diffusion test decreased [Unknown]
  - Pleural fibrosis [Unknown]
  - Pulmonary mass [Unknown]
  - Pleural mass [Unknown]
  - Traumatic lung injury [Unknown]
